FAERS Safety Report 25817576 (Version 2)
Quarter: 2025Q4

REPORT INFORMATION
  Report Type: Report from Study
  Country: EU (occurrence: EU)
  Receive Date: 20250918
  Receipt Date: 20251008
  Transmission Date: 20260118
  Serious: Yes (Death, Other)
  Sender: REGENERON
  Company Number: EU-REGENERON PHARMACEUTICALS, INC.-2025-147775

PATIENT
  Age: 71 Year
  Sex: Female

DRUGS (1)
  1. CEMIPLIMAB [Suspect]
     Active Substance: CEMIPLIMAB
     Indication: Skin cancer
     Dosage: UNK
     Dates: start: 20250311

REACTIONS (1)
  - Death [Fatal]

NARRATIVE: CASE EVENT DATE: 20250513
